FAERS Safety Report 9184221 (Version 1)
Quarter: 2013Q1

REPORT INFORMATION
  Report Type: Spontaneous
  Country: US (occurrence: US)
  Receive Date: 20130322
  Receipt Date: 20130322
  Transmission Date: 20140127
  Serious: No
  Sender: FDA-Public Use
  Company Number: US-BRISTOL-MYERS SQUIBB COMPANY-16466062

PATIENT
  Age: 49 Year
  Sex: Male

DRUGS (1)
  1. ERBITUX [Suspect]
     Indication: COLORECTAL CANCER

REACTIONS (5)
  - Teeth brittle [Unknown]
  - Onychoclasis [Unknown]
  - Hyperkeratosis [Unknown]
  - Dysgeusia [Unknown]
  - Hair growth abnormal [Unknown]
